FAERS Safety Report 5642662-7 (Version None)
Quarter: 2008Q1

REPORT INFORMATION
  Report Type: 
  Country: None (occurrence: None)
  Receive Date: 20080226
  Receipt Date: 20080212
  Transmission Date: 20080703
  Serious: Yes (Hospitalization)
  Sender: FDA-Public Use
  Company Number: SE-GDP-08403551

PATIENT
  Age: 90 Year
  Sex: Male

DRUGS (1)
  1. METVIXIA [Suspect]
     Indication: BASAL CELL CARCINOMA
     Dosage: 1 DF TOPICAL TOPICAL
     Route: 061
     Dates: start: 20071206, end: 20071206

REACTIONS (4)
  - ANGIOEDEMA [None]
  - DYSPNOEA [None]
  - PHARYNGEAL OEDEMA [None]
  - PRURITUS [None]
